FAERS Safety Report 8934994 (Version 1)
Quarter: 2012Q4

REPORT INFORMATION
  Report Type: 
  Country: IT (occurrence: IT)
  Receive Date: 20121129
  Receipt Date: 20121129
  Transmission Date: 20130627
  Serious: Yes (Other)
  Sender: FDA-Public Use
  Company Number: IT-PFIZER INC-2012297454

PATIENT
  Age: 67 Year
  Sex: Male

DRUGS (10)
  1. IRINOTECAN HCL [Suspect]
     Indication: ADENOCARCINOMA OF COLON
     Dosage: UNK
     Route: 065
  2. CISPLATIN [Suspect]
     Indication: HODGKIN^S DISEASE STAGE III
     Dosage: UNK
     Route: 065
  3. DOXORUBICIN HCL [Suspect]
     Indication: CARCINOMA OF LUNG
     Dosage: UNK
     Route: 065
  4. CYTARABINE [Suspect]
     Indication: HODGKIN^S DISEASE STAGE III
     Dosage: UNK
     Route: 065
  5. FLUOROURACIL [Suspect]
     Indication: ADENOCARCINOMA OF LUNG
     Dosage: UNK
     Route: 065
  6. DEXAMETHASONE SODIUM PHOSPHATE [Suspect]
     Indication: HODGKIN^S DISEASE STAGE III
     Dosage: UNK
     Route: 065
  7. BLEOMYCIN [Suspect]
     Indication: CARCINOMA OF LUNG
     Dosage: UNK
     Route: 065
  8. VINBLASTINE [Suspect]
     Indication: CARCINOMA OF LUNG
     Dosage: UNK
     Route: 065
  9. FOLINIC ACID [Suspect]
     Indication: ADENOCARCINOMA
     Dosage: UNK
     Route: 065
  10. DACARBAZINE [Suspect]
     Indication: CARCINOMA OF LUNG
     Dosage: UNK
     Route: 065

REACTIONS (1)
  - Tuberculosis [Recovered/Resolved]
